FAERS Safety Report 5621043-6 (Version None)
Quarter: 2008Q1

REPORT INFORMATION
  Report Type: 
  Country: None (occurrence: None)
  Receive Date: 20080208
  Receipt Date: 20080131
  Transmission Date: 20080703
  Serious: Yes (Other)
  Sender: FDA-Public Use
  Company Number: US-PFIZER INC-2008010374

PATIENT
  Sex: Female
  Weight: 77.272 kg

DRUGS (5)
  1. LYRICA [Suspect]
     Indication: FIBROMYALGIA
  2. LYRICA [Suspect]
     Indication: INTERVERTEBRAL DISC PROTRUSION
  3. EFFEXOR [Concomitant]
  4. ATENOLOL [Concomitant]
  5. MOBIC [Concomitant]

REACTIONS (3)
  - HEARING IMPAIRED [None]
  - TYMPANIC MEMBRANE PERFORATION [None]
  - WEIGHT INCREASED [None]
